FAERS Safety Report 8880860 (Version 3)
Quarter: 2013Q1

REPORT INFORMATION
  Report Type: Spontaneous
  Country: JP (occurrence: JP)
  Receive Date: 20121101
  Receipt Date: 20130325
  Transmission Date: 20140127
  Serious: Yes (Other)
  Sender: FDA-Public Use
  Company Number: JP-ASTRAZENECA-2012SE75526

PATIENT
  Age: 9868 Day
  Sex: Male

DRUGS (4)
  1. DIPRIVAN [Suspect]
     Indication: SEDATION
     Dosage: 7 ML (70 MG)/H FROM 16:00, 5 ML (50 MG)/H FROM 18:50, TOTAL DOSE OF 12 MG (MAINTENANCE)
     Route: 042
     Dates: start: 20120924, end: 20120926
  2. DIPRIVAN [Suspect]
     Indication: SEDATION
     Dosage: 25 ML (250 MG)/H AFTER OCCURANCE OF UNREST
     Route: 042
     Dates: start: 20120924, end: 20120926
  3. ULTIVA [Concomitant]
     Indication: INDUCTION OF ANAESTHESIA
     Route: 065
     Dates: start: 20120924, end: 20120924
  4. FENTANYL [Concomitant]
     Indication: INDUCTION OF ANAESTHESIA
     Route: 065
     Dates: start: 20120924, end: 20120924

REACTIONS (2)
  - Restlessness [Recovering/Resolving]
  - Chromaturia [Recovered/Resolved]
